FAERS Safety Report 4431990-9 (Version None)
Quarter: 2004Q3

REPORT INFORMATION
  Report Type: 
  Country: None (occurrence: None)
  Receive Date: 20040819
  Receipt Date: 20040621
  Transmission Date: 20050211
  Serious: Yes (Hospitalization)
  Sender: FDA-Public Use
  Company Number: 2004-BP-04920BP

PATIENT
  Age: 61 Year
  Sex: Male

DRUGS (5)
  1. MOBIC [Suspect]
     Indication: OSTEOARTHRITIS
     Dosage: 15 MG (15 MG, 1 OD), PO
     Route: 048
  2. PREDNISONE [Suspect]
     Indication: RHEUMATOID ARTHRITIS
     Dosage: 30 MG (QD), PO
     Route: 048
     Dates: start: 20040301, end: 20040301
  3. METHOTREXATE [Concomitant]
  4. WELLBUTRIN [Concomitant]
  5. VICODIN [Concomitant]

REACTIONS (10)
  - BLOOD PRESSURE DECREASED [None]
  - CONDITION AGGRAVATED [None]
  - GASTRIC ULCER [None]
  - HAEMATEMESIS [None]
  - HIATUS HERNIA [None]
  - LEUKOCYTOSIS [None]
  - OESOPHAGITIS [None]
  - PEPTIC ULCER [None]
  - RHEUMATOID ARTHRITIS [None]
  - UPPER GASTROINTESTINAL HAEMORRHAGE [None]
